FAERS Safety Report 6045155-0 (Version None)
Quarter: 2009Q1

REPORT INFORMATION
  Report Type: 
  Country: None (occurrence: None)
  Receive Date: 20090121
  Receipt Date: 20090108
  Transmission Date: 20090719
  Serious: Yes (Hospitalization)
  Sender: FDA-Public Use
  Company Number: JP-PFIZER INC-2009155872

PATIENT

DRUGS (2)
  1. MIGLITOL [Suspect]
     Dosage: 75 MG, UNK
     Route: 048
     Dates: start: 20081001, end: 20090106
  2. LOCHOL [Suspect]
     Route: 048

REACTIONS (3)
  - BLOOD BILIRUBIN INCREASED [None]
  - HEPATIC FUNCTION ABNORMAL [None]
  - TRANSAMINASES INCREASED [None]
